FAERS Safety Report 10098071 (Version 3)
Quarter: 2014Q3

REPORT INFORMATION
  Report Type: Spontaneous
  Country: FR (occurrence: FR)
  Receive Date: 20140423
  Receipt Date: 20140703
  Transmission Date: 20150326
  Serious: Yes (Life-Threatening, Hospitalization)
  Sender: FDA-Public Use
  Company Number: FR-BAYER-2014-059433

PATIENT
  Sex: Female

DRUGS (1)
  1. MIRENA [Suspect]
     Active Substance: LEVONORGESTREL
     Dosage: 20 MCG/24HR, CONT
     Route: 015
     Dates: start: 201302

REACTIONS (14)
  - Epilepsy [Recovering/Resolving]
  - Headache [Recovered/Resolved]
  - Haemorrhagic stroke [Recovered/Resolved]
  - Fall [Recovering/Resolving]
  - Hemiplegia [Recovering/Resolving]
  - Agoraphobia [Recovered/Resolved]
  - Discomfort [Recovering/Resolving]
  - Fatigue [Recovered/Resolved]
  - Stress [Recovered/Resolved]
  - Visual impairment [Recovering/Resolving]
  - Syncope [Recovering/Resolving]
  - Loss of consciousness [Recovering/Resolving]
  - Malaise [Recovering/Resolving]
  - Muscle spasms [Recovered/Resolved]

NARRATIVE: CASE EVENT DATE: 2013
